FAERS Safety Report 7771896-0 (Version None)
Quarter: 2011Q3

REPORT INFORMATION
  Report Type: 
  Country: None (occurrence: None)
  Receive Date: 20110922
  Receipt Date: 20110415
  Transmission Date: 20111222
  Serious: No
  Sender: FDA-Public Use
  Company Number: US-ASTRAZENECA-2011SE22214

PATIENT
  Age: 48 Year
  Sex: Male
  Weight: 77.1 kg

DRUGS (12)
  1. SEROQUEL [Suspect]
     Dosage: 150 MG
     Route: 048
     Dates: start: 20110201
  2. DEPAKOTE [Concomitant]
  3. ASPIRIN [Concomitant]
     Indication: MIGRAINE
     Dosage: AS REQUIRED
  4. LORTAB [Concomitant]
  5. SEROQUEL [Suspect]
     Dosage: 150 MG
     Route: 048
     Dates: end: 20101201
  6. SEROQUEL [Suspect]
     Indication: INSOMNIA
     Dosage: 300 MG
     Route: 048
  7. SEROQUEL [Suspect]
     Dosage: 300 MG
     Route: 048
     Dates: start: 20101201, end: 20110201
  8. EXCEDRINE XRWITH CAFFEINE [Concomitant]
     Indication: MIGRAINE
     Dosage: AS REQUIRED
  9. SEROQUEL [Suspect]
     Dosage: 300 MG
     Route: 048
     Dates: start: 20101201, end: 20110201
  10. SEROQUEL [Suspect]
     Dosage: 150 MG
     Route: 048
     Dates: start: 20110201
  11. SEROQUEL [Suspect]
     Indication: DEPRESSION
     Dosage: 300 MG
     Route: 048
  12. SEROQUEL [Suspect]
     Dosage: 150 MG
     Route: 048
     Dates: end: 20101201

REACTIONS (8)
  - ACTIVITIES OF DAILY LIVING IMPAIRED [None]
  - WEIGHT DECREASED [None]
  - FEELING ABNORMAL [None]
  - WRONG TECHNIQUE IN DRUG USAGE PROCESS [None]
  - INSOMNIA [None]
  - MOOD SWINGS [None]
  - MIGRAINE WITH AURA [None]
  - OFF LABEL USE [None]
